FAERS Safety Report 6211477-3 (Version None)
Quarter: 2009Q2

REPORT INFORMATION
  Report Type: 
  Country: None (occurrence: None)
  Receive Date: 20090602
  Receipt Date: 20090522
  Transmission Date: 20091009
  Serious: Yes (Hospitalization)
  Sender: FDA-Public Use
  Company Number: CA-JNJFOC-20090506197

PATIENT
  Sex: Male
  Weight: 68.18 kg

DRUGS (2)
  1. REMICADE [Suspect]
     Indication: CROHN'S DISEASE
     Dosage: TOTAL NUMBER OF DOSES: 2 (LOADING DOSES)
     Route: 042
  2. SOLU-CORTEF [Concomitant]
     Indication: PREMEDICATION

REACTIONS (3)
  - CROHN'S DISEASE [None]
  - DEHYDRATION [None]
  - STOMATITIS [None]
